FAERS Safety Report 8993022 (Version 2)
Quarter: 2013Q1

REPORT INFORMATION
  Report Type: Report from Study
  Country: DE (occurrence: DE)
  Receive Date: 20130102
  Receipt Date: 20130130
  Transmission Date: 20140127
  Serious: Yes (Hospitalization)
  Sender: FDA-Public Use
  Company Number: DE-BAYER-2012-135597

PATIENT
  Sex: Female

DRUGS (6)
  1. SORAFENIB (RAF KINASE INHIBITOR) [Suspect]
     Indication: METASTATIC RENAL CELL CARCINOMA
     Dosage: 800 MG, QD
     Dates: start: 20121030, end: 20121215
  2. EUTHYROX [Concomitant]
     Dosage: DAILY DOSE 125 MG
  3. OMEPRAZOL [Concomitant]
     Dosage: 40 MG PER DAY
     Dates: start: 201212
  4. PASPERTIN [Concomitant]
     Dosage: 20 DROPS PER DAY
     Dates: start: 20121127
  5. DECORTIN [Concomitant]
     Dosage: 5MG PER DAY
     Dates: start: 20121113
  6. VOMEX-A [DIMENHYDRINATE] [Concomitant]
     Dosage: 150MG PER DAY
     Dates: start: 20121127

REACTIONS (1)
  - Oesophagitis [Recovered/Resolved]
